FAERS Safety Report 7001753-9 (Version None)
Quarter: 2010Q3

REPORT INFORMATION
  Report Type: 
  Country: None (occurrence: None)
  Receive Date: 20100920
  Receipt Date: 20100331
  Transmission Date: 20110219
  Serious: Yes (Hospitalization)
  Sender: FDA-Public Use
  Company Number: US-ASTRAZENECA-2009SE17837

PATIENT
  Age: 18495 Day
  Sex: Male

DRUGS (5)
  1. SEROQUEL [Suspect]
     Indication: ANXIETY
     Dosage: 50-400 MG QHS
     Route: 048
     Dates: start: 20050101
  2. CYMBALTA [Concomitant]
     Dosage: 600 MG Q AM
  3. ATIVAN [Concomitant]
     Indication: ANXIETY
  4. PROTONIX [Concomitant]
  5. LOVENOX [Concomitant]

REACTIONS (2)
  - DIABETIC KETOACIDOSIS [None]
  - TYPE 1 DIABETES MELLITUS [None]
